FAERS Safety Report 19733889 (Version 1)
Quarter: 2021Q3

REPORT INFORMATION
  Report Type: Spontaneous
  Country: US (occurrence: US)
  Receive Date: 20210823
  Receipt Date: 20210823
  Transmission Date: 20211014
  Serious: No
  Sender: FDA-Public Use
  Company Number: US-009507513-2108USA004016

PATIENT
  Sex: Female

DRUGS (1)
  1. BELSOMRA [Suspect]
     Active Substance: SUVOREXANT
     Indication: SLEEP DISORDER THERAPY
     Dosage: 15 MILLIGRAM NIGHTLY
     Route: 048

REACTIONS (2)
  - Product dose omission issue [Unknown]
  - Insomnia [Not Recovered/Not Resolved]

NARRATIVE: CASE EVENT DATE: 2021
